FAERS Safety Report 15905488 (Version 1)
Quarter: 2019Q1

REPORT INFORMATION
  Report Type: Spontaneous
  Country: US (occurrence: US)
  Receive Date: 20190204
  Receipt Date: 20190204
  Transmission Date: 20190417
  Serious: No
  Sender: FDA-Public Use
  Company Number: US-MYLANLABS-2019M1003964

PATIENT

DRUGS (2)
  1. BUPROPION MYLAN [Suspect]
     Active Substance: BUPROPION
     Indication: HOT FLUSH
     Dosage: UNK
     Route: 048
  2. BUPROPION MYLAN [Suspect]
     Active Substance: BUPROPION
     Indication: DEPRESSION

REACTIONS (1)
  - Drug ineffective for unapproved indication [Not Recovered/Not Resolved]
